FAERS Safety Report 10369239 (Version 1)
Quarter: 2014Q1

REPORT INFORMATION
  Report Type: Spontaneous
  Country: US (occurrence: None)
  Receive Date: 20140306
  Receipt Date: 20140306
  Transmission Date: 20141002
  Serious: Yes (Other)
  Sender: FDA-Public Use
  Company Number: 163-21880-13090760

PATIENT
  Age: 68 Year
  Sex: Female

DRUGS (12)
  1. REVLIMID (LENALIDOMIDE) (CAPSULES) [Suspect]
     Indication: PLASMA CELL MYELOMA
     Dosage: 25 MG, 1 IN 1 D, 11/2008 - UNKNOWN
     Route: 048
     Dates: start: 200811
  2. ASPIRIN [Concomitant]
  3. ROBITUSSIN [Concomitant]
  4. LYRICA (PREGABALIN) [Concomitant]
  5. PREMARIN [Concomitant]
  6. DEXAMETHASONE [Concomitant]
  7. OMEGA 4 + VITAMIN D3 [Concomitant]
  8. MELOXICAM [Concomitant]
  9. LEVOTHYROXINE [Concomitant]
  10. CENTRUM MULTIVITAMINS [Concomitant]
  11. CACLCIUM 600 + VITAMIN D [Concomitant]
  12. FOSAMAX [Concomitant]

REACTIONS (1)
  - Neuropathy peripheral [None]
